FAERS Safety Report 23589489 (Version 1)
Quarter: 2024Q1

REPORT INFORMATION
  Report Type: Spontaneous
  Country: US (occurrence: US)
  Receive Date: 20240304
  Receipt Date: 20240304
  Transmission Date: 20240410
  Serious: No
  Sender: FDA-Public Use
  Company Number: US-AMGEN-USASP2024042251

PATIENT
  Sex: Female

DRUGS (2)
  1. PROCRIT [Suspect]
     Active Substance: ERYTHROPOIETIN
     Indication: Product used for unknown indication
     Dosage: UNK
     Route: 065
  2. CARVYKTI [Concomitant]
     Active Substance: CILTACABTAGENE AUTOLEUCEL
     Dosage: UNK
     Route: 065
     Dates: start: 202302

REACTIONS (3)
  - Asthenia [Unknown]
  - Fatigue [Unknown]
  - Mobility decreased [Unknown]
